FAERS Safety Report 8834031 (Version 2)
Quarter: 2012Q4

REPORT INFORMATION
  Report Type: 
  Country: DE (occurrence: DE)
  Receive Date: 20121010
  Receipt Date: 20121024
  Transmission Date: 20130627
  Serious: Yes (Other)
  Sender: FDA-Public Use
  Company Number: GXKR2012DE003131

PATIENT
  Sex: Female

DRUGS (1)
  1. TRAMADOL SANDOZ [Suspect]
     Route: 065

REACTIONS (3)
  - Drug abuse [Unknown]
  - Product tampering [Unknown]
  - Product quality issue [Unknown]
